FAERS Safety Report 5972406-0 (Version None)
Quarter: 2008Q4

REPORT INFORMATION
  Report Type: 
  Country: None (occurrence: None)
  Receive Date: 20081125
  Receipt Date: 20081110
  Transmission Date: 20090506
  Serious: Yes (Congenital Anomaly)
  Sender: FDA-Public Use
  Company Number: GXKR2008GB10783

PATIENT
  Sex: Male
  Weight: 1.2 kg

DRUGS (4)
  1. BENDROFLUMETHIAZIDE (NGX)(BENDROFLUMETHIAZIDE) UNKNOWN [Suspect]
     Dosage: , TRANSPLACENTAL
     Route: 064
  2. LISINOPRIL [Suspect]
     Dosage: , TRANSPLACENTAL
     Route: 064
  3. METHYLDOPA [Concomitant]
  4. LEVOTHYROXINE SODIUM [Concomitant]

REACTIONS (8)
  - BLOOD CREATININE INCREASED [None]
  - FEEDING DISORDER OF INFANCY OR EARLY CHILDHOOD [None]
  - GROWTH RETARDATION [None]
  - MATERNAL DRUGS AFFECTING FOETUS [None]
  - NEONATAL RESPIRATORY DISTRESS SYNDROME [None]
  - NEPHROLITHIASIS [None]
  - PREMATURE BABY [None]
  - URINE OXALATE INCREASED [None]
